FAERS Safety Report 24204948 (Version 2)
Quarter: 2024Q3

REPORT INFORMATION
  Report Type: Report from Study
  Country: IN (occurrence: IN)
  Receive Date: 20240813
  Receipt Date: 20240917
  Transmission Date: 20241017
  Serious: Yes (Other)
  Sender: ROCHE
  Company Number: IN-002147023-NVSC2024IN136003

PATIENT
  Age: 59 Year
  Sex: Female

DRUGS (2)
  1. RANIBIZUMAB [Suspect]
     Active Substance: RANIBIZUMAB
     Indication: Retinal vein occlusion
     Dosage: 0.5 MG, QMO
     Route: 050
     Dates: start: 20230607
  2. RANIBIZUMAB [Suspect]
     Active Substance: RANIBIZUMAB
     Dosage: PRN
     Route: 050

REACTIONS (5)
  - Retinal oedema [Unknown]
  - Eye swelling [Recovered/Resolved]
  - Visual impairment [Unknown]
  - Glaucoma [Unknown]
  - Refraction disorder [Unknown]
